FAERS Safety Report 24866942 (Version 3)
Quarter: 2025Q1

REPORT INFORMATION
  Report Type: Spontaneous
  Country: GB (occurrence: GB)
  Receive Date: 20250121
  Receipt Date: 20250303
  Transmission Date: 20250408
  Serious: Yes (Hospitalization, Other)
  Sender: MYLAN
  Company Number: GB-MYLANLABS-2025M1004768

PATIENT
  Sex: Female
  Weight: 67.5 kg

DRUGS (2)
  1. CLOZARIL [Suspect]
     Active Substance: CLOZAPINE
     Indication: Schizophrenia
     Dates: start: 20060801, end: 20241220
  2. CLOZARIL [Suspect]
     Active Substance: CLOZAPINE
     Dosage: 200 MILLIGRAM, QD
     Dates: start: 20250225

REACTIONS (7)
  - Colitis [Unknown]
  - Colitis ulcerative [Unknown]
  - Schizophrenia [Unknown]
  - Inflammatory bowel disease [Unknown]
  - Malaise [Unknown]
  - Illness [Unknown]
  - Therapy cessation [Recovered/Resolved]

NARRATIVE: CASE EVENT DATE: 20241201
